FAERS Safety Report 9366412 (Version 2)
Quarter: 2013Q3

REPORT INFORMATION
  Report Type: Spontaneous
  Country: US (occurrence: US)
  Receive Date: 20130625
  Receipt Date: 20130701
  Transmission Date: 20140515
  Serious: No
  Sender: FDA-Public Use
  Company Number: US-TEVA-414809USA

PATIENT
  Sex: Female

DRUGS (1)
  1. FENTORA [Suspect]
     Indication: CANCER PAIN
     Route: 002

REACTIONS (3)
  - Drug effect decreased [Unknown]
  - Wrong technique in drug usage process [Unknown]
  - Disturbance in attention [Unknown]
